FAERS Safety Report 6902828-2 (Version None)
Quarter: 2010Q3

REPORT INFORMATION
  Report Type: 
  Country: None (occurrence: None)
  Receive Date: 20100803
  Receipt Date: 20080805
  Transmission Date: 20110219
  Serious: No
  Sender: FDA-Public Use
  Company Number: US-PFIZER INC-2008051145

PATIENT
  Sex: Female
  Weight: 73.6 kg

DRUGS (15)
  1. LYRICA [Suspect]
     Indication: FIBROMYALGIA
     Route: 048
     Dates: start: 20080401
  2. LYRICA [Suspect]
     Indication: MUSCULOSKELETAL PAIN
  3. ADVAIR DISKUS 100/50 [Concomitant]
  4. TOPROL-XL [Concomitant]
     Indication: BLOOD PRESSURE ABNORMAL
  5. SIMVASTATIN [Concomitant]
     Indication: BLOOD CHOLESTEROL INCREASED
  6. NEURONTIN [Concomitant]
  7. BROMOCRIPTINE MESYLATE [Concomitant]
  8. CELEBREX [Concomitant]
  9. PAXIL [Concomitant]
  10. CLONAZEPAM [Concomitant]
  11. MUCINEX [Concomitant]
  12. ASTELIN [Concomitant]
     Route: 045
  13. MONTELUKAST SODIUM [Concomitant]
  14. NASONEX [Concomitant]
     Route: 045
  15. PRILOSEC [Concomitant]
     Indication: GASTROOESOPHAGEAL REFLUX DISEASE

REACTIONS (5)
  - BALANCE DISORDER [None]
  - DIARRHOEA [None]
  - HEADACHE [None]
  - VISION BLURRED [None]
  - WEIGHT DECREASED [None]
